FAERS Safety Report 11507179 (Version 1)
Quarter: 2015Q3

REPORT INFORMATION
  Report Type: Spontaneous
  Country: US (occurrence: US)
  Receive Date: 20150915
  Receipt Date: 20150915
  Transmission Date: 20151125
  Serious: No
  Sender: FDA-Public Use
  Company Number: US-BANPHARM-20143289

PATIENT
  Age: 84 Year
  Sex: Female
  Weight: 54.43 kg

DRUGS (2)
  1. ZYRTEC [Suspect]
     Active Substance: CETIRIZINE HYDROCHLORIDE
     Indication: SEASONAL ALLERGY
     Dosage: 1 DF, QD,
     Route: 048
     Dates: start: 20141206, end: 20141208
  2. VITAMIN [Concomitant]
     Active Substance: VITAMINS
     Dosage: QD,

REACTIONS (1)
  - Drug ineffective [Unknown]
